FAERS Safety Report 9867095 (Version 1)
Quarter: 2014Q1

REPORT INFORMATION
  Report Type: Spontaneous
  Country: US (occurrence: US)
  Receive Date: 20140204
  Receipt Date: 20140204
  Transmission Date: 20141002
  Serious: Yes (Other)
  Sender: FDA-Public Use
  Company Number: US-MALLINCKRODT-T201401097

PATIENT
  Age: 6 Year
  Sex: Male
  Weight: 16.78 kg

DRUGS (1)
  1. GABLOFEN [Suspect]
     Indication: MUSCLE SPASTICITY
     Dosage: 216 MCG/DAY
     Route: 037

REACTIONS (1)
  - Implant site erosion [Unknown]
